FAERS Safety Report 20807755 (Version 3)
Quarter: 2022Q2

REPORT INFORMATION
  Report Type: Spontaneous
  Country: US (occurrence: US)
  Receive Date: 20220510
  Receipt Date: 20220616
  Transmission Date: 20220721
  Serious: Yes (Hospitalization, Other)
  Sender: FDA-Public Use
  Company Number: US-GSKCCFUS-Case-01371933_AE-79311

PATIENT

DRUGS (3)
  1. ANORO ELLIPTA [Suspect]
     Active Substance: UMECLIDINIUM BROMIDE\VILANTEROL TRIFENATATE
     Indication: Product used for unknown indication
     Dosage: UNK
     Dates: start: 20220506
  2. AMOXICILLIN [Suspect]
     Active Substance: AMOXICILLIN
     Indication: Blood immunoglobulin G decreased
     Dosage: UNK
  3. PROZAC [Suspect]
     Active Substance: FLUOXETINE HYDROCHLORIDE
     Indication: Anxiety
     Dosage: UNK

REACTIONS (9)
  - Hypoxia [Unknown]
  - Acute respiratory failure [Unknown]
  - Mental status changes [Unknown]
  - Hypercapnia [Unknown]
  - COVID-19 pneumonia [Unknown]
  - Lymphadenopathy [Unknown]
  - Somnolence [Recovering/Resolving]
  - Weight increased [Unknown]
  - Hypoacusis [Unknown]

NARRATIVE: CASE EVENT DATE: 20220506
